FAERS Safety Report 5085414-1 (Version None)
Quarter: 2006Q3

REPORT INFORMATION
  Report Type: 
  Country: None (occurrence: None)
  Receive Date: 20060817
  Receipt Date: 20060803
  Transmission Date: 20061208
  Serious: Yes (Other)
  Sender: FDA-Public Use
  Company Number: 2006096385

PATIENT
  Age: 52 Year
  Sex: Female
  Weight: 52.1637 kg

DRUGS (1)
  1. BEXTRA [Suspect]
     Indication: FIBROMYALGIA
     Dosage: (20 MG, UNKNOWN), UNKNOWN

REACTIONS (1)
  - TRANSIENT ISCHAEMIC ATTACK [None]
